FAERS Safety Report 18962985 (Version 7)
Quarter: 2022Q1

REPORT INFORMATION
  Report Type: Report from Study
  Country: US (occurrence: US)
  Receive Date: 20210303
  Receipt Date: 20220223
  Transmission Date: 20220423
  Serious: Yes (Hospitalization)
  Sender: FDA-Public Use
  Company Number: US-JCAR017-FOL-001-1041004-20210119-0001SG

PATIENT
  Age: 78 Year
  Sex: Female
  Weight: 56 kg

DRUGS (23)
  1. LISOCABTAGENE MARALEUCEL [Suspect]
     Active Substance: LISOCABTAGENE MARALEUCEL
     Indication: Follicular lymphoma
     Dosage: 100 X 10^6 CAR+ T CELLS X ONCE
     Route: 042
     Dates: start: 20210113, end: 20210113
  2. CYCLOPHOSPHAMIDE [Suspect]
     Active Substance: CYCLOPHOSPHAMIDE
     Indication: Follicular lymphoma
     Dosage: 470 MG X ONCE
     Route: 042
     Dates: start: 20210108, end: 20210108
  3. CYCLOPHOSPHAMIDE [Suspect]
     Active Substance: CYCLOPHOSPHAMIDE
     Dosage: 470 MG X ONCE
     Route: 042
     Dates: start: 20210109, end: 20210109
  4. CYCLOPHOSPHAMIDE [Suspect]
     Active Substance: CYCLOPHOSPHAMIDE
     Dosage: 470 MG X ONCE
     Route: 042
     Dates: start: 20210110, end: 20210110
  5. FLUDARABINE [Suspect]
     Active Substance: FLUDARABINE PHOSPHATE
     Indication: Follicular lymphoma
     Dosage: 37.5 MG X ONCE
     Route: 042
     Dates: start: 20210108, end: 20210108
  6. FLUDARABINE [Suspect]
     Active Substance: FLUDARABINE PHOSPHATE
     Dosage: 37.5 MG X ONCE
     Route: 042
     Dates: start: 20210109, end: 20210109
  7. FLUDARABINE [Suspect]
     Active Substance: FLUDARABINE PHOSPHATE
     Dosage: 37.5 MG X ONCE
     Route: 042
     Dates: start: 20210110, end: 20210110
  8. ASPIRIN [Concomitant]
     Active Substance: ASPIRIN
     Indication: Prophylaxis
     Dosage: 81 MG X 1 X 1 DAYS
     Route: 042
  9. KEPPRA [Concomitant]
     Active Substance: LEVETIRACETAM
     Indication: Prophylaxis
     Dosage: 500 MG X 2 X 1 DAYS
     Route: 042
  10. KEPPRA [Concomitant]
     Active Substance: LEVETIRACETAM
     Dosage: 750 MG X 1 X 12 HOURS
     Route: 048
     Dates: start: 20210124
  11. ACYCLOVIR [Concomitant]
     Active Substance: ACYCLOVIR
     Indication: Prophylaxis
     Dosage: 200 MG X 2 X 1 DAYS
     Route: 042
     Dates: start: 20160424
  12. ALLOPURINOL [Concomitant]
     Active Substance: ALLOPURINOL
     Indication: Prophylaxis
     Dosage: 300 MG X ONCE
     Route: 042
     Dates: start: 20210112, end: 20210118
  13. CEFEPIME [Concomitant]
     Active Substance: CEFEPIME HYDROCHLORIDE
     Indication: Prophylaxis
     Dosage: 2 G/M2/H X 1 X 8 HOURS
     Route: 042
     Dates: start: 20210117, end: 20210120
  14. FLUCONAZOLE [Concomitant]
     Active Substance: FLUCONAZOLE
     Indication: Prophylaxis
     Dosage: 200 MG X 2 X 1 DAYS
     Route: 042
     Dates: start: 20210117, end: 20210119
  15. PENTAMIDINE [Concomitant]
     Active Substance: PENTAMIDINE
     Indication: Prophylaxis
     Dosage: 300 MG X ONCE
     Route: 042
     Dates: start: 20210111, end: 20210111
  16. SODIUM CHLORIDE [Concomitant]
     Active Substance: SODIUM CHLORIDE
     Indication: Supportive care
     Dosage: 1,000 ML X 1 X 2 HOURS
     Route: 042
     Dates: start: 20210108, end: 20210108
  17. SODIUM CHLORIDE [Concomitant]
     Active Substance: SODIUM CHLORIDE
     Dosage: 1,000 ML X ONCE
     Route: 042
     Dates: start: 20210109, end: 20210109
  18. SODIUM CHLORIDE [Concomitant]
     Active Substance: SODIUM CHLORIDE
     Dosage: 1,000 ML X ONCE
     Route: 042
     Dates: start: 20210110, end: 20210110
  19. TRAMADOL [Concomitant]
     Active Substance: TRAMADOL
     Indication: Pain
     Dosage: 50 MG X PRN
     Route: 048
     Dates: start: 20210113, end: 20210127
  20. TYLENOL [Concomitant]
     Active Substance: ACETAMINOPHEN
     Indication: Premedication
     Dosage: 650 MG X ONCE
     Route: 042
     Dates: start: 20210113, end: 20210113
  21. VANCOMYCIN [Concomitant]
     Active Substance: VANCOMYCIN
     Indication: Prophylaxis
     Dosage: 830 MG X 1 X 24 HOURS
     Route: 042
     Dates: start: 20210117, end: 20210120
  22. ZOVIRAX [Concomitant]
     Active Substance: ACYCLOVIR
     Indication: Prophylaxis
     Dosage: 400 MG X 2 X 1 DAYS
     Route: 042
     Dates: start: 20210112, end: 20210127
  23. ZOVIRAX [Concomitant]
     Active Substance: ACYCLOVIR
     Dosage: 400 MG X 2 X 1 DAYS
     Route: 048
     Dates: start: 20210127

REACTIONS (2)
  - Neurotoxicity [Recovered/Resolved]
  - Cytokine release syndrome [Recovered/Resolved]

NARRATIVE: CASE EVENT DATE: 20210117
